FAERS Safety Report 6746182-8 (Version None)
Quarter: 2010Q2

REPORT INFORMATION
  Report Type: 
  Country: None (occurrence: None)
  Receive Date: 20100528
  Receipt Date: 20091202
  Transmission Date: 20101027
  Serious: No
  Sender: FDA-Public Use
  Company Number: US-ASTRAZENECA-2009SE30224

PATIENT
  Sex: Male

DRUGS (2)
  1. PRILOSEC [Suspect]
  2. ZANTAC [Suspect]

REACTIONS (1)
  - ABDOMINAL DISCOMFORT [None]
